FAERS Safety Report 8886481 (Version 1)
Quarter: 2012Q4

REPORT INFORMATION
  Report Type: 
  Country: AR (occurrence: AR)
  Receive Date: 20121105
  Receipt Date: 20121105
  Transmission Date: 20130627
  Serious: Yes (Other)
  Sender: FDA-Public Use
  Company Number: PHHY2012AR099854

PATIENT
  Sex: Female

DRUGS (4)
  1. LAPENAX [Suspect]
     Indication: SCHIZOPHRENIA
     Dosage: 100 mg, TID
     Route: 048
     Dates: start: 2009, end: 201110
  2. LAPENAX [Suspect]
     Route: 048
     Dates: start: 201204, end: 201209
  3. LAPENAX [Suspect]
     Dosage: UNK UKN, UNK
     Route: 048
     Dates: start: 201210, end: 201210
  4. CLOZAPINE [Suspect]
     Dates: start: 201209

REACTIONS (2)
  - Suicide attempt [Recovered/Resolved]
  - Psychotic disorder [Recovered/Resolved]
